FAERS Safety Report 6430622-8 (Version None)
Quarter: 2009Q4

REPORT INFORMATION
  Report Type: 
  Country: None (occurrence: None)
  Receive Date: 20091106
  Receipt Date: 20091104
  Transmission Date: 20100525
  Serious: Yes (Disabling)
  Sender: FDA-Public Use
  Company Number: A0815435A

PATIENT
  Age: 57 Year
  Sex: Male
  Weight: 72 kg

DRUGS (1)
  1. MELPHALAN [Suspect]
     Indication: AMYLOIDOSIS
     Dosage: 70MGM2 UNKNOWN
     Route: 065
     Dates: start: 20090925, end: 20090926

REACTIONS (3)
  - CEREBRAL ISCHAEMIA [None]
  - CRANIAL NERVE DISORDER [None]
  - FACIAL PALSY [None]
